FAERS Safety Report 21523562 (Version 1)
Quarter: 2022Q4

REPORT INFORMATION
  Report Type: Report from Study
  Country: US (occurrence: US)
  Receive Date: 20221029
  Receipt Date: 20221029
  Transmission Date: 20230113
  Serious: No
  Sender: FDA-Public Use
  Company Number: US-ABBVIE-22K-163-4383457-00

PATIENT
  Age: 27 Year
  Sex: Female

DRUGS (3)
  1. HUMIRA [Suspect]
     Active Substance: ADALIMUMAB
     Indication: Hidradenitis
     Dosage: CITRATE FREE
     Route: 058
     Dates: start: 20210228
  2. HUMIRA [Suspect]
     Active Substance: ADALIMUMAB
     Dosage: CITRATE FREE
     Route: 058
  3. JANSSEN COVID-19 VACCINE [Concomitant]
     Active Substance: AD26.COV2.S
     Indication: COVID-19 immunisation
     Route: 030

REACTIONS (12)
  - Skin irritation [Unknown]
  - Injection site pain [Recovered/Resolved]
  - Hypersensitivity [Recovering/Resolving]
  - Dysuria [Unknown]
  - Scratch [Unknown]
  - Sleep disorder [Unknown]
  - Vomiting [Unknown]
  - Pyrexia [Unknown]
  - Pain [Unknown]
  - Hidradenitis [Recovering/Resolving]
  - Blood urine present [Unknown]
  - Nausea [Unknown]

NARRATIVE: CASE EVENT DATE: 20220426
